FAERS Safety Report 6485393-6 (Version None)
Quarter: 2009Q4

REPORT INFORMATION
  Report Type: 
  Country: None (occurrence: None)
  Receive Date: 20091204
  Receipt Date: 20091118
  Transmission Date: 20100525
  Serious: Yes (Hospitalization)
  Sender: FDA-Public Use
  Company Number: DSA_42046_2009

PATIENT
  Age: 28 Year
  Sex: Female

DRUGS (8)
  1. ENALAPRIL MALEATE [Suspect]
     Indication: BLOOD PRESSURE INCREASED
     Dosage: (10 MG 1X/12 HOURS), 920 MG 1X/12 HOURS)
  2. PREDNISONE [Concomitant]
  3. ATENOLOL [Concomitant]
  4. AMLODIPINE [Concomitant]
  5. FUROSEMIDE [Concomitant]
  6. SIMVASTATIN [Concomitant]
  7. IRON [Concomitant]
  8. CALCIUM [Concomitant]

REACTIONS (8)
  - BLOOD GLUCOSE INCREASED [None]
  - BLOOD PRESSURE INADEQUATELY CONTROLLED [None]
  - BRAIN OEDEMA [None]
  - COMPLEMENT FACTOR C3 DECREASED [None]
  - DEPRESSED LEVEL OF CONSCIOUSNESS [None]
  - GRAND MAL CONVULSION [None]
  - GRAVITATIONAL OEDEMA [None]
  - PROTEINURIA [None]
